FAERS Safety Report 24326471 (Version 2)
Quarter: 2024Q3

REPORT INFORMATION
  Report Type: Spontaneous
  Country: US (occurrence: US)
  Receive Date: 20240917
  Receipt Date: 20240919
  Transmission Date: 20241016
  Serious: No
  Sender: AMGEN
  Company Number: US-AMGEN-USASP2024184069

PATIENT
  Age: 73 Year
  Sex: Male

DRUGS (1)
  1. AMJEVITA [Suspect]
     Active Substance: ADALIMUMAB-ATTO
     Indication: Product used for unknown indication
     Dosage: 40 MILLIGRAM, QMO
     Route: 065
     Dates: start: 2024

REACTIONS (2)
  - Device difficult to use [Unknown]
  - Vision blurred [Unknown]

NARRATIVE: CASE EVENT DATE: 20240912
